FAERS Safety Report 8163821-8 (Version None)
Quarter: 2012Q1

REPORT INFORMATION
  Report Type: 
  Country: None (occurrence: None)
  Receive Date: 20120224
  Receipt Date: 20120217
  Transmission Date: 20120608
  Serious: Yes (Hospitalization, Congenital Anomaly, Other)
  Sender: FDA-Public Use
  Company Number: US-PFIZER INC-2010109636

PATIENT
  Sex: Female
  Weight: 3 kg

DRUGS (11)
  1. ERYTHROMYCIN [Concomitant]
     Indication: PRURITUS
  2. ERYTHROMYCIN [Concomitant]
     Indication: EAR PAIN
     Dosage: UNK
     Route: 064
     Dates: start: 20030311
  3. SYNTHROID [Concomitant]
     Indication: THYROID DISORDER
     Dosage: 50 MG, 1X/DAY
     Route: 064
  4. PROLEX D [Concomitant]
     Indication: OROPHARYNGEAL PAIN
     Dosage: UNK
     Route: 064
     Dates: start: 20030311
  5. ZOLOFT [Suspect]
     Indication: DEPRESSED MOOD
     Dosage: UNK
     Route: 064
  6. PROPYLTHIOURACIL [Concomitant]
     Indication: HYPOTHYROIDISM
     Dosage: 100 MG, 3X/DAY
     Route: 064
     Dates: start: 20021007
  7. PROLEX D [Concomitant]
     Indication: PHARYNGITIS
  8. ETHINYL ESTRADIOL [Concomitant]
     Dosage: UNK
     Route: 064
  9. ERYTHROMYCIN [Concomitant]
     Indication: OROPHARYNGEAL PAIN
     Dosage: ^250^ FOUR TIMES DAILY
     Route: 064
     Dates: start: 20021230
  10. ATENOLOL [Concomitant]
     Indication: HEART RATE INCREASED
     Dosage: 50 MG, 1X/DAY
     Route: 064
     Dates: start: 20021007, end: 20021101
  11. ERYTHROMYCIN [Concomitant]
     Indication: PHARYNGITIS

REACTIONS (25)
  - PATENT DUCTUS ARTERIOSUS [None]
  - DEAFNESS NEUROSENSORY [None]
  - ASTHMA [None]
  - DILATATION VENTRICULAR [None]
  - JAUNDICE NEONATAL [None]
  - OSTEOPENIA [None]
  - GROWTH RETARDATION [None]
  - FOETAL EXPOSURE DURING PREGNANCY [None]
  - ATRIAL SEPTAL DEFECT [None]
  - RIGHT ATRIAL DILATATION [None]
  - SEASONAL ALLERGY [None]
  - CARDIAC FAILURE CONGESTIVE [None]
  - BRONCHITIS [None]
  - NEUTROPENIA [None]
  - UPPER RESPIRATORY TRACT INFECTION [None]
  - MARFAN'S SYNDROME [None]
  - TRICUSPID VALVE INCOMPETENCE [None]
  - TRANSIENT TACHYPNOEA OF THE NEWBORN [None]
  - HAND DEFORMITY [None]
  - OTITIS MEDIA [None]
  - SPEECH DISORDER DEVELOPMENTAL [None]
  - FOOT DEFORMITY [None]
  - RIGHT VENTRICULAR HYPERTROPHY [None]
  - VENTRICULAR SEPTAL DEFECT [None]
  - FAILURE TO THRIVE [None]
